FAERS Safety Report 22600409 (Version 5)
Quarter: 2023Q4

REPORT INFORMATION
  Report Type: Spontaneous
  Country: US (occurrence: US)
  Receive Date: 20230614
  Receipt Date: 20231108
  Transmission Date: 20240110
  Serious: Yes (Other)
  Sender: FDA-Public Use
  Company Number: US-AMGEN-USASP2023102095

PATIENT
  Age: 71 Year
  Sex: Female
  Weight: 77.098 kg

DRUGS (2)
  1. REPATHA [Suspect]
     Active Substance: EVOLOCUMAB
     Indication: Hypercholesterolaemia
     Dosage: 140 MILLIGRAM, Q2WK
     Route: 058
     Dates: start: 20230422, end: 20230505
  2. LIVALO [Concomitant]
     Active Substance: PITAVASTATIN CALCIUM
     Indication: Hypercholesterolaemia
     Dosage: UNK
     Dates: end: 2023

REACTIONS (8)
  - Dementia [Recovering/Resolving]
  - Neuropathy peripheral [Recovering/Resolving]
  - Wheezing [Recovering/Resolving]
  - Feeling abnormal [Recovering/Resolving]
  - Fall [Unknown]
  - Night sweats [Recovering/Resolving]
  - Low density lipoprotein increased [Recovering/Resolving]
  - Blood cholesterol increased [Recovering/Resolving]

NARRATIVE: CASE EVENT DATE: 20230101
